FAERS Safety Report 25835344 (Version 2)
Quarter: 2025Q3

REPORT INFORMATION
  Report Type: Spontaneous
  Country: EU (occurrence: EU)
  Receive Date: 20250923
  Receipt Date: 20250930
  Transmission Date: 20251020
  Serious: Yes (Other)
  Sender: TEVA
  Company Number: EU-TEVA-VS-3373679

PATIENT
  Age: 74 Year
  Sex: Female

DRUGS (1)
  1. METOCLOPRAMIDE [Suspect]
     Active Substance: METOCLOPRAMIDE
     Indication: Product used for unknown indication
     Route: 065
     Dates: start: 202009

REACTIONS (17)
  - Myocardial infarction [Unknown]
  - Pain [Unknown]
  - Gait disturbance [Unknown]
  - Nervous system disorder [Unknown]
  - Speech disorder [Recovered/Resolved]
  - Adverse event [Unknown]
  - Asthenopia [Unknown]
  - Trismus [Not Recovered/Not Resolved]
  - Fall [Unknown]
  - Discomfort [Unknown]
  - Dyskinesia [Not Recovered/Not Resolved]
  - Mouth haemorrhage [Unknown]
  - Parkinsonism [Unknown]
  - Mental fatigue [Unknown]
  - Fatigue [Unknown]
  - Fear [Unknown]
  - Weight decreased [Unknown]

NARRATIVE: CASE EVENT DATE: 20200925
